FAERS Safety Report 13681854 (Version 1)
Quarter: 2017Q2

REPORT INFORMATION
  Report Type: Spontaneous
  Country: IT (occurrence: IT)
  Receive Date: 20170623
  Receipt Date: 20170623
  Transmission Date: 20170830
  Serious: Yes (Hospitalization, Other)
  Sender: FDA-Public Use
  Company Number: IT-ALEMBIC PHARMACUETICALS LIMITED-2017SCAL000543

PATIENT

DRUGS (2)
  1. LEVOTHYROXINE. [Concomitant]
     Active Substance: LEVOTHYROXINE
     Indication: AUTOIMMUNE THYROIDITIS
     Dosage: UNK
  2. HYDROCHLOROTHIAZIDE. [Suspect]
     Active Substance: HYDROCHLOROTHIAZIDE
     Indication: OEDEMA
     Dosage: 25 MG, ONE PILL

REACTIONS (8)
  - Pulmonary oedema [Recovering/Resolving]
  - Nausea [Recovering/Resolving]
  - Feeling abnormal [Recovering/Resolving]
  - Procalcitonin increased [Recovering/Resolving]
  - Chills [Recovering/Resolving]
  - Prescription drug used without a prescription [Unknown]
  - Vomiting [Recovering/Resolving]
  - Asthenia [Recovering/Resolving]
